FAERS Safety Report 7870088-4 (Version None)
Quarter: 2011Q4

REPORT INFORMATION
  Report Type: 
  Country: None (occurrence: None)
  Receive Date: 20111028
  Receipt Date: 20110113
  Transmission Date: 20120403
  Serious: No
  Sender: FDA-Public Use
  Company Number: US-AMGEN-USASP2011002422

PATIENT
  Age: 63 Year
  Sex: Female
  Weight: 40.363 kg

DRUGS (8)
  1. PLAQUENIL [Concomitant]
     Dosage: 200 MG, UNK
  2. CELEBREX [Concomitant]
     Dosage: 100 MG, UNK
  3. PREDNISONE [Concomitant]
     Dosage: 2.5 MG, UNK
  4. FOLIC ACID [Concomitant]
     Dosage: 1 MG, UNK
  5. METHOTREXATE [Concomitant]
     Dosage: 2.5 MG, UNK
  6. LYRICA [Concomitant]
     Dosage: 100 MG, UNK
  7. KEFLEX [Concomitant]
     Dosage: 250 MG, UNK
  8. ENBREL [Suspect]
     Indication: PRODUCT USED FOR UNKNOWN INDICATION
     Dosage: 50 MG, QWK
     Route: 058

REACTIONS (1)
  - HERPES ZOSTER [None]
